FAERS Safety Report 18186760 (Version 5)
Quarter: 2021Q1

REPORT INFORMATION
  Report Type: Spontaneous
  Country: US (occurrence: US)
  Receive Date: 20200824
  Receipt Date: 20210301
  Transmission Date: 20210419
  Serious: No
  Sender: FDA-Public Use
  Company Number: US-PFIZER INC-2020323277

PATIENT
  Age: 64 Year
  Sex: Male

DRUGS (2)
  1. EUCRISA [Suspect]
     Active Substance: CRISABOROLE
     Indication: ECZEMA
     Dosage: UNK (GETTING A 60 GRAM TUBE)
  2. EUCRISA [Suspect]
     Active Substance: CRISABOROLE
     Dosage: UNK (2%, 100GRAM TUBE)

REACTIONS (6)
  - Condition aggravated [Unknown]
  - Therapeutic product effect decreased [Unknown]
  - Product physical consistency issue [Unknown]
  - Poor quality product administered [Unknown]
  - Product quality issue [Unknown]
  - Dermatitis [Unknown]
